FAERS Safety Report 9989108 (Version 2)
Quarter: 2014Q1

REPORT INFORMATION
  Report Type: Report from Study
  Country: US (occurrence: US)
  Receive Date: 20140310
  Receipt Date: 20140310
  Transmission Date: 20141002
  Serious: Yes (Hospitalization)
  Sender: FDA-Public Use
  Company Number: US-ABBVIE-13P-163-1049446-00

PATIENT
  Age: 47 Year
  Sex: Female

DRUGS (1)
  1. HUMIRA [Suspect]
     Indication: CROHN^S DISEASE
     Dosage: MAINTENANCE DOSE: DAY 29
     Route: 058
     Dates: start: 20121112

REACTIONS (8)
  - Dehydration [Unknown]
  - Dehydration [Unknown]
  - Dehydration [Unknown]
  - Headache [Unknown]
  - Headache [Unknown]
  - Headache [Unknown]
  - Sinusitis [Unknown]
  - Headache [Unknown]
